FAERS Safety Report 9079363 (Version 4)
Quarter: 2013Q1

REPORT INFORMATION
  Report Type: Report from Study
  Country: FR (occurrence: FR)
  Receive Date: 20130130
  Receipt Date: 20130321
  Transmission Date: 20140127
  Serious: Yes (Hospitalization)
  Sender: FDA-Public Use
  Company Number: FR-ROCHE-1183584

PATIENT
  Age: 53 Year
  Sex: Male
  Weight: 75 kg

DRUGS (11)
  1. RITUXIMAB [Suspect]
     Indication: CHRONIC LYMPHOCYTIC LEUKAEMIA
     Dosage: DAY 1 CYCLE
     Route: 042
     Dates: start: 20121218, end: 20130115
  2. BACTRIM FORTE [Suspect]
     Indication: PROPHYLAXIS
     Route: 048
     Dates: start: 20121218, end: 20130107
  3. CYCLOPHOSPHAMIDE [Suspect]
     Indication: CHRONIC LYMPHOCYTIC LEUKAEMIA
     Dosage: DAY 2 TO DAY 4
     Route: 048
     Dates: start: 20121219, end: 20130115
  4. FLUDARABINE [Suspect]
     Indication: CHRONIC LYMPHOCYTIC LEUKAEMIA
     Dosage: DAY 2 TO DAY 4
     Route: 048
     Dates: start: 20121219, end: 20130115
  5. GRANOCYTE [Suspect]
     Indication: NEUTROPENIA
     Dosage: 34 MIU/ML
     Route: 058
     Dates: start: 20121228, end: 20130103
  6. ZELITREX [Suspect]
     Route: 048
     Dates: start: 20121218, end: 20130115
  7. ZYLORIC [Suspect]
     Indication: HYPERURICAEMIA
     Route: 048
     Dates: start: 20121107, end: 20130115
  8. ZOPHREN [Concomitant]
     Route: 065
     Dates: start: 20121218
  9. XANAX [Concomitant]
     Route: 065
     Dates: start: 20121218
  10. XANAX [Concomitant]
     Route: 048
     Dates: start: 20121026, end: 20130115
  11. XANAX [Concomitant]
     Route: 065

REACTIONS (1)
  - Drug reaction with eosinophilia and systemic symptoms [Recovered/Resolved with Sequelae]
